FAERS Safety Report 12434346 (Version 2)
Quarter: 2016Q3

REPORT INFORMATION
  Report Type: Report from Study
  Country: JP (occurrence: JP)
  Receive Date: 20160603
  Receipt Date: 20160801
  Transmission Date: 20161109
  Serious: Yes (Hospitalization)
  Sender: FDA-Public Use
  Company Number: JP-FERRINGPH-2016FE02450

PATIENT

DRUGS (9)
  1. PROGESTERONE. [Concomitant]
     Active Substance: PROGESTERONE
     Dosage: 50 MG, DAILY
     Route: 030
     Dates: start: 20150908, end: 20150912
  2. LUTORAL [Concomitant]
     Active Substance: CHLORMADINONE ACETATE\MESTRANOL
     Indication: PREGNANCY
     Dosage: 2 MG, DAILY
     Route: 048
     Dates: start: 20150913, end: 20151130
  3. PROGESTERONE. [Suspect]
     Active Substance: PROGESTERONE
     Indication: ASSISTED FERTILISATION
     Dosage: 200 MG, DAILY
     Route: 067
     Dates: start: 201511, end: 20151130
  4. PROGESTERONE. [Suspect]
     Active Substance: PROGESTERONE
     Dosage: 200 MG, DAILY
     Route: 067
     Dates: start: 20151019, end: 20151109
  5. PROGESTERONE. [Concomitant]
     Active Substance: PROGESTERONE
     Indication: PREGNANCY
     Dosage: 50 MG, DAILY
     Route: 030
     Dates: start: 20151110, end: 20151122
  6. PROGESTERONE. [Suspect]
     Active Substance: PROGESTERONE
     Dosage: 200 MG, DAILY
     Route: 067
     Dates: start: 20150912, end: 20150928
  7. PROGESTERONE. [Concomitant]
     Active Substance: PROGESTERONE
     Dosage: 50 MG, DAILY
     Route: 030
     Dates: start: 20150928, end: 20151018
  8. ESTRANA [Concomitant]
     Active Substance: ESTRADIOL
     Indication: PREGNANCY
     Dosage: 2.88 MG, DAILY
     Route: 062
     Dates: start: 20150826, end: 20151130
  9. DUPHASTON [Concomitant]
     Active Substance: DYDROGESTERONE
     Indication: PREGNANCY
     Dosage: 30 MG, DAILY
     Route: 048
     Dates: start: 20150913, end: 20150928

REACTIONS (2)
  - Abortion threatened [Recovered/Resolved]
  - Abortion threatened [Recovered/Resolved]

NARRATIVE: CASE EVENT DATE: 20150928
